FAERS Safety Report 8380237-X (Version None)
Quarter: 2012Q2

REPORT INFORMATION
  Report Type: 
  Country: None (occurrence: None)
  Receive Date: 20120523
  Receipt Date: 20120515
  Transmission Date: 20120825
  Serious: Yes (Other)
  Sender: FDA-Public Use
  Company Number: PHHO2012FR007604

PATIENT

DRUGS (2)
  1. IMATINIB MESYLATE [Suspect]
     Dosage: UNK
  2. IMATINIB MESYLATE [Suspect]
     Dosage: 440 MG/M2, UNK

REACTIONS (1)
  - ONCOLOGIC COMPLICATION [None]
